FAERS Safety Report 7705197-3 (Version None)
Quarter: 2011Q3

REPORT INFORMATION
  Report Type: 
  Country: None (occurrence: None)
  Receive Date: 20110818
  Receipt Date: 20110805
  Transmission Date: 20111222
  Serious: Yes (Hospitalization, Other)
  Sender: FDA-Public Use
  Company Number: 2011P1007935

PATIENT
  Age: 31 Year
  Sex: Female
  Weight: 63.5036 kg

DRUGS (8)
  1. ALBUTEROL INHALER [Concomitant]
  2. LAMOTRIGINE [Suspect]
     Indication: BIPOLAR DISORDER
     Dosage: 100 MG ; QD ; PO
     Route: 048
     Dates: start: 20110501, end: 20110722
  3. HYDROCODONE/TYLENOL [Concomitant]
  4. VITAMIN D [Concomitant]
  5. OXYCODONE 5MG(CON.) [Concomitant]
  6. OXCARBAZEPINE [Concomitant]
  7. SOMA 350 MG(CON.) [Concomitant]
  8. METHADONE 127 MG(CON.) [Concomitant]

REACTIONS (13)
  - FRACTURE NONUNION [None]
  - DIARRHOEA [None]
  - STAPHYLOCOCCAL INFECTION [None]
  - CLAVICLE FRACTURE [None]
  - URTICARIA [None]
  - BONE GRAFT [None]
  - ERYTHEMA MULTIFORME [None]
  - FALL [None]
  - RASH [None]
  - PRURITUS [None]
  - OSTEOMYELITIS [None]
  - ANGIOEDEMA [None]
  - SURGICAL PROCEDURE REPEATED [None]
